FAERS Safety Report 5089537-2 (Version None)
Quarter: 2006Q3

REPORT INFORMATION
  Report Type: 
  Country: None (occurrence: None)
  Receive Date: 20060822
  Receipt Date: 20060811
  Transmission Date: 20061208
  Serious: Yes (Other)
  Sender: FDA-Public Use
  Company Number: SPV1-2006-00432

PATIENT

DRUGS (1)
  1. DAYTRANA [Suspect]
     Dosage: TRANSDERMAL
     Route: 062

REACTIONS (1)
  - PSYCHOTIC DISORDER [None]
